FAERS Safety Report 8558346-1 (Version None)
Quarter: 2012Q3

REPORT INFORMATION
  Report Type: 
  Country: None (occurrence: None)
  Receive Date: 20120801
  Receipt Date: 20120719
  Transmission Date: 20120928
  Serious: No
  Sender: FDA-Public Use
  Company Number: US-ASTRAZENECA-2012SE51187

PATIENT
  Age: 42 Year
  Sex: Female

DRUGS (3)
  1. SINGULAIR [Concomitant]
  2. RESCUE INHALER [Concomitant]
  3. CRESTOR [Suspect]
     Route: 048

REACTIONS (1)
  - ASTHMA [None]
